FAERS Safety Report 5672401-5 (Version None)
Quarter: 2008Q1

REPORT INFORMATION
  Report Type: 
  Country: None (occurrence: None)
  Receive Date: 20080319
  Receipt Date: 20080312
  Transmission Date: 20080703
  Serious: Yes (Other)
  Sender: FDA-Public Use
  Company Number: PHHY2008BR02844

PATIENT
  Age: 29 Year
  Sex: Male

DRUGS (2)
  1. LEPONEX [Suspect]
     Dosage: 25MG/DAY
     Dates: start: 20080111
  2. LEPONEX [Suspect]
     Dosage: 300MG/DAY, 1TAB AM;2 TAB PM
     Route: 048

REACTIONS (5)
  - DEPRESSED MOOD [None]
  - DIZZINESS [None]
  - EOSINOPHILIA [None]
  - LEUKOCYTOSIS [None]
  - PARALYSIS [None]
